FAERS Safety Report 11152719 (Version 2)
Quarter: 2015Q3

REPORT INFORMATION
  Report Type: Spontaneous
  Country: FR (occurrence: FR)
  Receive Date: 20150601
  Receipt Date: 20150701
  Transmission Date: 20151125
  Serious: Yes (Disabling, Other)
  Sender: FDA-Public Use
  Company Number: FR-MUNDIPHARMA DS AND PHARMACOVIGILANCE-GBR-2015-0027319

PATIENT
  Age: 33 Year
  Sex: Female
  Weight: 57 kg

DRUGS (5)
  1. INEXIUM                            /01479302/ [Concomitant]
     Active Substance: ESOMEPRAZOLE MAGNESIUM
     Dosage: 20 MG, BID
     Dates: start: 20150302, end: 20150402
  2. OXYCONTIN [Concomitant]
     Active Substance: OXYCODONE HYDROCHLORIDE
     Indication: PAIN
     Dosage: 10 MG, IN TH EVENING
  3. OXYNORMORO COMPRIME ORODISPERSIBLE 20 MG [Concomitant]
     Indication: PAIN
     Dosage: 2 OR 3 INTAKE OF 20 MG IN THE DAY
     Route: 048
  4. MIOREL [Concomitant]
     Active Substance: ORPHENADRINE
     Dosage: 3-4 DF, DAILY
     Dates: start: 20150107, end: 20150331
  5. OXYCONTIN [Suspect]
     Active Substance: OXYCODONE HYDROCHLORIDE
     Indication: PAIN
     Dosage: 120 MG, BID
     Route: 048
     Dates: start: 20150409, end: 20150416

REACTIONS (10)
  - Dry eye [Not Recovered/Not Resolved]
  - Pallor [Recovered/Resolved]
  - Product quality issue [Recovered/Resolved]
  - Overdose [Recovered/Resolved]
  - Tremor [Recovered/Resolved]
  - Malaise [Recovered/Resolved]
  - Vertigo [Recovered/Resolved]
  - Headache [Recovered/Resolved]
  - Feeling abnormal [Recovered/Resolved]
  - Fatigue [Recovered/Resolved]

NARRATIVE: CASE EVENT DATE: 20150411
